FAERS Safety Report 12138827 (Version 2)
Quarter: 2016Q2

REPORT INFORMATION
  Report Type: Spontaneous
  Country: US (occurrence: US)
  Receive Date: 20160302
  Receipt Date: 20160401
  Transmission Date: 20160815
  Serious: No
  Sender: FDA-Public Use
  Company Number: US-SHIRE-US201602577

PATIENT
  Age: 29 Year
  Sex: Female
  Weight: 61.22 kg

DRUGS (1)
  1. VYVANSE [Suspect]
     Active Substance: LISDEXAMFETAMINE DIMESYLATE
     Indication: ATTENTION DEFICIT/HYPERACTIVITY DISORDER
     Dosage: 50 MG, 1X/DAY:QD
     Route: 048
     Dates: start: 2014

REACTIONS (5)
  - Drug ineffective [Not Recovered/Not Resolved]
  - Product quality issue [Unknown]
  - Headache [Recovered/Resolved]
  - Fatigue [Not Recovered/Not Resolved]
  - Wrong technique in product usage process [Recovered/Resolved]

NARRATIVE: CASE EVENT DATE: 2014
